FAERS Safety Report 10395478 (Version 4)
Quarter: 2015Q3

REPORT INFORMATION
  Report Type: Other
  Country: GB (occurrence: GB)
  Receive Date: 20140820
  Receipt Date: 20150709
  Transmission Date: 20151125
  Serious: Yes (Other)
  Sender: FDA-Public Use
  Company Number: GB-MYLAN-2014M1000855

PATIENT

DRUGS (1)
  1. DOXYCYCLINE. [Suspect]
     Active Substance: DOXYCYCLINE
     Indication: SINUS CONGESTION
     Dosage: 200 MG, QD
     Route: 048

REACTIONS (6)
  - Abscess oral [Recovered/Resolved]
  - Condition aggravated [Unknown]
  - Anosmia [Recovered/Resolved with Sequelae]
  - Urticaria [Recovered/Resolved]
  - Pain [Recovered/Resolved with Sequelae]
  - Raynaud^s phenomenon [Not Recovered/Not Resolved]

NARRATIVE: CASE EVENT DATE: 20140318
